FAERS Safety Report 17552360 (Version 1)
Quarter: 2020Q1

REPORT INFORMATION
  Report Type: Spontaneous
  Country: US (occurrence: US)
  Receive Date: 20200317
  Receipt Date: 20200317
  Transmission Date: 20200409
  Serious: Yes (Hospitalization)
  Sender: FDA-Public Use
  Company Number: US-FERRINGPH-2020FE01657

PATIENT
  Age: 17 Year
  Sex: Female
  Weight: 51 kg

DRUGS (1)
  1. ZOMACTON [Suspect]
     Active Substance: SOMATROPIN
     Indication: TURNER^S SYNDROME
     Dosage: 2 MG, DAILY
     Route: 058
     Dates: start: 20200301, end: 20200304

REACTIONS (2)
  - Seizure [Recovered/Resolved]
  - Tachycardia [Not Recovered/Not Resolved]

NARRATIVE: CASE EVENT DATE: 20200304
